FAERS Safety Report 15735789 (Version 1)
Quarter: 2018Q4

REPORT INFORMATION
  Report Type: Report from Study
  Country: None (occurrence: GB)
  Receive Date: 20181218
  Receipt Date: 20181218
  Transmission Date: 20190205
  Serious: Yes (Other)
  Sender: FDA-Public Use
  Company Number: GB-ABBVIE-18S-167-2595950-00

PATIENT
  Sex: Male

DRUGS (1)
  1. DUODOPA [Suspect]
     Active Substance: CARBIDOPA\LEVODOPA
     Indication: PARKINSON^S DISEASE
     Dosage: 5MG/1ML; 20MG/1ML; 100ML CASSETTE?ASD
     Route: 050

REACTIONS (4)
  - On and off phenomenon [Unknown]
  - Tremor [Unknown]
  - Dyskinesia [Recovering/Resolving]
  - Chronic lymphocytic leukaemia [Unknown]
